FAERS Safety Report 9969956 (Version 1)
Quarter: 2014Q1

REPORT INFORMATION
  Report Type: Spontaneous
  Country: US (occurrence: None)
  Receive Date: 20140131
  Receipt Date: 20140131
  Transmission Date: 20141002
  Serious: Yes (Other)
  Sender: FDA-Public Use
  Company Number: 074292

PATIENT
  Sex: Male

DRUGS (12)
  1. KEPPRA [Suspect]
     Indication: CONVULSION
  2. LACOSAMIDE [Concomitant]
  3. INDOMETHACIN /00003801/ [Concomitant]
  4. RANITIDINE [Concomitant]
  5. METOPROLOL [Concomitant]
  6. TAMSULOSIN [Concomitant]
  7. FINASTERIDE [Concomitant]
  8. FLUOXETINE [Concomitant]
  9. TYLENOL /00020001/ [Concomitant]
  10. VITAMIN D NOS [Concomitant]
  11. MULTIVITAMIN /00831701/ [Concomitant]
  12. OXYBUTYNIN [Concomitant]

REACTIONS (1)
  - Suicidal ideation [None]
